FAERS Safety Report 11258353 (Version 1)
Quarter: 2015Q3

REPORT INFORMATION
  Report Type: Spontaneous
  Country: US (occurrence: US)
  Receive Date: 20150710
  Receipt Date: 20150710
  Transmission Date: 20151125
  Serious: Yes (Other)
  Sender: FDA-Public Use
  Company Number: US-AMGEN-USASP2015067653

PATIENT
  Age: 49 Year
  Sex: Female

DRUGS (1)
  1. ENBREL [Suspect]
     Active Substance: ETANERCEPT
     Indication: PSORIATIC ARTHROPATHY
     Dosage: 50 MG, QWK
     Route: 065
     Dates: start: 201502

REACTIONS (4)
  - Dysphonia [Not Recovered/Not Resolved]
  - Peritonsillar abscess [Recovered/Resolved]
  - Psoriasis [Not Recovered/Not Resolved]
  - Tonsillar disorder [Not Recovered/Not Resolved]

NARRATIVE: CASE EVENT DATE: 2015
